FAERS Safety Report 24045056 (Version 1)
Quarter: 2024Q3

REPORT INFORMATION
  Report Type: Spontaneous
  Country: FR (occurrence: FR)
  Receive Date: 20240703
  Receipt Date: 20240703
  Transmission Date: 20241017
  Serious: Yes (Other)
  Sender: AUROBINDO
  Company Number: FR-AFSSAPS-BR2024000524

PATIENT
  Age: 77 Year
  Sex: Female
  Weight: 69 kg

DRUGS (1)
  1. LETROZOLE [Suspect]
     Active Substance: LETROZOLE
     Indication: Breast cancer
     Dosage: 2.5 MILLIGRAM, ONCE A DAY
     Route: 048
     Dates: start: 20220317

REACTIONS (1)
  - Retinal vein occlusion [Not Recovered/Not Resolved]

NARRATIVE: CASE EVENT DATE: 20240609
